FAERS Safety Report 4738131-9 (Version None)
Quarter: 2005Q3

REPORT INFORMATION
  Report Type: 
  Country: None (occurrence: None)
  Receive Date: 20050809
  Receipt Date: 20050225
  Transmission Date: 20060218
  Serious: Yes (Hospitalization)
  Sender: FDA-Public Use
  Company Number: JP-ROCHE-397998

PATIENT
  Age: 49 Year
  Sex: Female

DRUGS (3)
  1. TAMIFLU [Suspect]
     Route: 048
     Dates: start: 20050220, end: 20050224
  2. RESPLEN [Concomitant]
  3. VOLTAREN [Concomitant]
     Route: 054

REACTIONS (1)
  - TOXIC SKIN ERUPTION [None]
